FAERS Safety Report 10142922 (Version 2)
Quarter: 2014Q2

REPORT INFORMATION
  Report Type: Spontaneous
  Country: US (occurrence: None)
  Receive Date: 20140428
  Receipt Date: 20140502
  Transmission Date: 20141212
  Serious: Yes (Other)
  Sender: FDA-Public Use
  Company Number: ADR-2014-00697

PATIENT
  Age: 49 Year
  Sex: Female

DRUGS (2)
  1. COMPOUNDED BACLOFEN [Suspect]
     Indication: SPINAL PAIN
  2. MORPHINE [Suspect]
     Indication: SPINAL PAIN

REACTIONS (5)
  - Feeling hot [None]
  - Dyskinesia [None]
  - Muscle spasms [None]
  - Drug withdrawal syndrome [None]
  - White blood cell count increased [None]
